FAERS Safety Report 8295625-X (Version None)
Quarter: 2012Q2

REPORT INFORMATION
  Report Type: 
  Country: None (occurrence: None)
  Receive Date: 20120413
  Receipt Date: 20120413
  Transmission Date: 20120825
  Serious: No
  Sender: FDA-Public Use
  Company Number: None

PATIENT
  Age: 63 Year
  Sex: Male

DRUGS (1)
  1. ISONIAZID [Suspect]
     Dates: start: 20040616, end: 20050222

REACTIONS (10)
  - LIVER INJURY [None]
  - ABDOMINAL DISTENSION [None]
  - JAUNDICE [None]
  - NAUSEA [None]
  - ENCEPHALOPATHY [None]
  - FATIGUE [None]
  - ASPARTATE AMINOTRANSFERASE INCREASED [None]
  - RENAL IMPAIRMENT [None]
  - ALANINE AMINOTRANSFERASE INCREASED [None]
  - ASCITES [None]
